FAERS Safety Report 5583075-6 (Version None)
Quarter: 2008Q1

REPORT INFORMATION
  Report Type: 
  Country: None (occurrence: None)
  Receive Date: 20080107
  Receipt Date: 20071228
  Transmission Date: 20080703
  Serious: Yes (Hospitalization)
  Sender: FDA-Public Use
  Company Number: B0501715A

PATIENT
  Age: 38 Day
  Sex: Male
  Weight: 4 kg

DRUGS (4)
  1. RETROVIR [Suspect]
     Indication: ANTIVIRAL PROPHYLAXIS
     Route: 048
     Dates: start: 20071012, end: 20071123
  2. RETROVIR [Suspect]
     Dates: start: 20071012, end: 20071012
  3. TRIZIVIR [Suspect]
     Indication: HIV INFECTION
     Dates: end: 20071012
  4. VIRAMUNE [Suspect]
     Indication: HIV INFECTION
     Dates: end: 20071012

REACTIONS (5)
  - ANAEMIA MACROCYTIC [None]
  - DRUG EXPOSURE DURING PREGNANCY [None]
  - PYREXIA [None]
  - SERUM FERRITIN INCREASED [None]
  - TRANSAMINASES INCREASED [None]
